FAERS Safety Report 5329683-9 (Version None)
Quarter: 2007Q2

REPORT INFORMATION
  Report Type: 
  Country: None (occurrence: None)
  Receive Date: 20070521
  Receipt Date: 20070514
  Transmission Date: 20071010
  Serious: Yes (Death, Hospitalization)
  Sender: FDA-Public Use
  Company Number: US-RB-006332-07

PATIENT
  Sex: Female

DRUGS (1)
  1. SUBOXONE [Suspect]

REACTIONS (1)
  - DEATH [None]
